FAERS Safety Report 7818147-6 (Version None)
Quarter: 2011Q4

REPORT INFORMATION
  Report Type: 
  Country: None (occurrence: None)
  Receive Date: 20111017
  Receipt Date: 20111010
  Transmission Date: 20120403
  Serious: Yes (Death)
  Sender: FDA-Public Use
  Company Number: GB-ROCHE-GNE321971

PATIENT
  Sex: Male

DRUGS (10)
  1. SPIRONOLACTONE [Concomitant]
  2. FUROSEMIDE [Concomitant]
  3. ALBUTEROL [Concomitant]
  4. LUCENTIS [Suspect]
     Indication: AGE-RELATED MACULAR DEGENERATION
     Route: 047
     Dates: start: 20080728, end: 20110516
  5. CIPROFLOXACIN [Concomitant]
  6. ACETAMINOPHEN [Concomitant]
  7. CARBOCYSTEINE [Concomitant]
  8. LANSOPRAZOLE [Concomitant]
  9. ZOPICLON [Concomitant]
  10. AMLODIPINE [Concomitant]

REACTIONS (4)
  - RENAL FAILURE [None]
  - MYOCARDIAL ISCHAEMIA [None]
  - BRONCHIECTASIS [None]
  - LOWER RESPIRATORY TRACT INFECTION [None]
